FAERS Safety Report 9736682 (Version 1)
Quarter: 2013Q4

REPORT INFORMATION
  Report Type: Spontaneous
  Country: US (occurrence: US)
  Receive Date: 20131206
  Receipt Date: 20131206
  Transmission Date: 20140711
  Serious: No
  Sender: FDA-Public Use
  Company Number: US-GILEAD-2009-0023356

PATIENT
  Sex: Female
  Weight: 59.42 kg

DRUGS (12)
  1. LETAIRIS [Suspect]
     Indication: PULMONARY ARTERIAL HYPERTENSION
     Route: 048
     Dates: start: 20090408
  2. COUMADIN [Concomitant]
  3. LASIX [Concomitant]
  4. REQUIP [Concomitant]
  5. PREMARIN [Concomitant]
  6. MIDRIN [Concomitant]
  7. DIGOXIN [Concomitant]
  8. POTASSIUM CHLORIDE [Concomitant]
  9. ZYRTEC-D [Concomitant]
  10. FEOSOL [Concomitant]
  11. NEXIUM [Concomitant]
  12. ATIVAN [Concomitant]

REACTIONS (1)
  - Local swelling [Unknown]
